FAERS Safety Report 6398336-0 (Version None)
Quarter: 2009Q4

REPORT INFORMATION
  Report Type: 
  Country: None (occurrence: None)
  Receive Date: 20091013
  Receipt Date: 20091006
  Transmission Date: 20100525
  Serious: Yes (Other)
  Sender: FDA-Public Use
  Company Number: FI-CUBIST-2009S1000345

PATIENT
  Age: 68 Year
  Sex: Male
  Weight: 65.7 kg

DRUGS (2)
  1. CUBICIN [Suspect]
     Indication: ENDOCARDITIS
     Route: 042
     Dates: start: 20090602, end: 20090624
  2. CUBICIN [Suspect]
     Route: 042
     Dates: start: 20090602, end: 20090624

REACTIONS (2)
  - ATELECTASIS [None]
  - PNEUMONIA [None]
